FAERS Safety Report 21266954 (Version 1)
Quarter: 2022Q3

REPORT INFORMATION
  Report Type: Spontaneous
  Country: FR (occurrence: FR)
  Receive Date: 20220829
  Receipt Date: 20220829
  Transmission Date: 20221026
  Serious: Yes (Hospitalization, Other)
  Sender: FDA-Public Use
  Company Number: FR-MLMSERVICE-20201118-2583692-1

PATIENT
  Age: 54 Year
  Sex: Female
  Weight: 67 kg

DRUGS (4)
  1. RISEDRONATE SODIUM [Suspect]
     Active Substance: RISEDRONATE SODIUM
     Indication: Vitamin D decreased
     Dosage: 1 DOSAGE FORM
     Route: 065
     Dates: start: 201901, end: 201902
  2. PREDNISONE [Concomitant]
     Active Substance: PREDNISONE
     Indication: Necrotising myositis
     Dosage: 60 MILLIGRAM, QD
     Route: 065
     Dates: start: 201812
  3. PREDNISONE [Concomitant]
     Active Substance: PREDNISONE
     Dosage: 10 MILLIGRAM, QD
     Route: 065
     Dates: start: 2003
  4. METHOTREXATE [Concomitant]
     Active Substance: METHOTREXATE
     Indication: Necrotising myositis
     Dosage: 25 MILLIGRAM, QW
     Route: 065
     Dates: start: 2003

REACTIONS (4)
  - Rhabdomyolysis [Recovered/Resolved]
  - Myositis [Recovered/Resolved]
  - Condition aggravated [Recovered/Resolved]
  - Acute phase reaction [Recovered/Resolved]

NARRATIVE: CASE EVENT DATE: 20190101
